FAERS Safety Report 6087305-6 (Version None)
Quarter: 2009Q1

REPORT INFORMATION
  Report Type: 
  Country: None (occurrence: None)
  Receive Date: 20090223
  Receipt Date: 20090218
  Transmission Date: 20090719
  Serious: Yes (Disabling)
  Sender: FDA-Public Use
  Company Number: A0769112A

PATIENT
  Age: 36 Year
  Sex: Female

DRUGS (5)
  1. LAMICTAL [Suspect]
     Dosage: 25MG THREE TIMES PER DAY
     Route: 048
     Dates: start: 20090205, end: 20090209
  2. SEROQUEL [Concomitant]
  3. PROZAC [Concomitant]
  4. RISPERDAL [Concomitant]
  5. AMBIEN [Concomitant]

REACTIONS (1)
  - NIGHTMARE [None]
